FAERS Safety Report 16406206 (Version 1)
Quarter: 2019Q2

REPORT INFORMATION
  Report Type: Spontaneous
  Country: US (occurrence: US)
  Receive Date: 20190607
  Receipt Date: 20190607
  Transmission Date: 20190711
  Serious: Yes (Hospitalization)
  Sender: FDA-Public Use
  Company Number: US-ALLERGAN-1846818US

PATIENT
  Age: 46 Year
  Sex: Female

DRUGS (1)
  1. VIBERZI [Suspect]
     Active Substance: ELUXADOLINE
     Indication: IRRITABLE BOWEL SYNDROME
     Dosage: UNK
     Route: 065
     Dates: start: 20160921, end: 20160921

REACTIONS (6)
  - Pancreatitis acute [Recovered/Resolved]
  - Anxiety [Not Recovered/Not Resolved]
  - Pain [Not Recovered/Not Resolved]
  - Decreased interest [Not Recovered/Not Resolved]
  - Psychological trauma [Not Recovered/Not Resolved]
  - Fear of disease [Not Recovered/Not Resolved]

NARRATIVE: CASE EVENT DATE: 20160921
